FAERS Safety Report 20720860 (Version 1)
Quarter: 2022Q2

REPORT INFORMATION
  Report Type: Spontaneous
  Country: US (occurrence: None)
  Receive Date: 20220415
  Receipt Date: 20220415
  Transmission Date: 20220721
  Serious: Yes (Hospitalization)
  Sender: FDA-Public Use
  Company Number: None

PATIENT
  Age: 16 Year
  Sex: Male
  Weight: 80.1 kg

DRUGS (4)
  1. ARIPIPRAZOLE [Suspect]
     Active Substance: ARIPIPRAZOLE
     Indication: Autism spectrum disorder
     Dosage: OTHER QUANTITY : 3 ML;?FREQUENCY : AT BEDTIME;?
     Route: 048
     Dates: start: 20220329, end: 20220412
  2. ARIPIPRAZOLE [Suspect]
     Active Substance: ARIPIPRAZOLE
     Indication: Affective disorder
  3. PROZAC [Concomitant]
     Active Substance: FLUOXETINE HYDROCHLORIDE
  4. GUANFACINE [Concomitant]
     Active Substance: GUANFACINE

REACTIONS (3)
  - Therapy non-responder [None]
  - Product substitution issue [None]
  - Abnormal behaviour [None]

NARRATIVE: CASE EVENT DATE: 20220401
